FAERS Safety Report 18192086 (Version 1)
Quarter: 2020Q3

REPORT INFORMATION
  Report Type: Spontaneous
  Country: US (occurrence: US)
  Receive Date: 20200824
  Receipt Date: 20200824
  Transmission Date: 20201103
  Serious: Yes (Other)
  Sender: FDA-Public Use
  Company Number: None

PATIENT
  Age: 73 Year
  Sex: Female

DRUGS (2)
  1. CINACALCET 90MG [Suspect]
     Active Substance: CINACALCET
     Route: 048
     Dates: start: 20200414
  2. CINACALCET 30MG [Suspect]
     Active Substance: CINACALCET
     Indication: HYPERCALCAEMIA
     Route: 048
     Dates: start: 20200611

REACTIONS (2)
  - Hypercalcaemia [None]
  - Therapy interrupted [None]

NARRATIVE: CASE EVENT DATE: 20200716
